FAERS Safety Report 12349072 (Version 3)
Quarter: 2017Q2

REPORT INFORMATION
  Report Type: Report from Study
  Country: US (occurrence: US)
  Receive Date: 20160509
  Receipt Date: 20170613
  Transmission Date: 20170830
  Serious: Yes (Other)
  Sender: FDA-Public Use
  Company Number: PHEH2016US011477

PATIENT
  Sex: Male

DRUGS (2)
  1. TASIGNA [Suspect]
     Active Substance: NILOTINIB
     Indication: WHITE BLOOD CELL COUNT INCREASED
     Dosage: 400 MG, QD
     Route: 065
     Dates: start: 20160316
  2. TASIGNA [Suspect]
     Active Substance: NILOTINIB
     Indication: CHRONIC MYELOID LEUKAEMIA

REACTIONS (5)
  - Platelet count decreased [Unknown]
  - Renal cancer [Unknown]
  - Red blood cell abnormality [Unknown]
  - Second primary malignancy [Unknown]
  - Myocardial infarction [Unknown]
